FAERS Safety Report 4656927-9 (Version None)
Quarter: 2005Q2

REPORT INFORMATION
  Report Type: 
  Country: None (occurrence: None)
  Receive Date: 20050505
  Receipt Date: 20050421
  Transmission Date: 20051028
  Serious: Yes (Hospitalization)
  Sender: FDA-Public Use
  Company Number: 2005UW06306

PATIENT
  Age: 75 Year
  Sex: Female
  Weight: 63.5 kg

DRUGS (5)
  1. CRESTOR [Suspect]
     Indication: BLOOD CHOLESTEROL INCREASED
     Dosage: 20 MG QD PO
     Route: 048
     Dates: start: 20040414, end: 20040701
  2. BEXTRA [Suspect]
     Dates: end: 20040701
  3. PROZAC [Concomitant]
  4. PREMARIN [Concomitant]
  5. NSAIDS [Concomitant]

REACTIONS (5)
  - ACUTE PRERENAL FAILURE [None]
  - HEPATITIS ACUTE [None]
  - ORAL INTAKE REDUCED [None]
  - RENAL FAILURE ACUTE [None]
  - URINARY TRACT INFECTION [None]
